FAERS Safety Report 14881651 (Version 1)
Quarter: 2018Q2

REPORT INFORMATION
  Report Type: Spontaneous
  Country: TW (occurrence: TW)
  Receive Date: 20180511
  Receipt Date: 20180511
  Transmission Date: 20180711
  Serious: Yes (Hospitalization)
  Sender: FDA-Public Use
  Company Number: TW-SHIONOGI, INC-2018000833

PATIENT
  Age: 85 Year
  Sex: Male

DRUGS (7)
  1. TAZOCIN [Concomitant]
     Active Substance: PIPERACILLIN SODIUM\TAZOBACTAM SODIUM
     Dosage: 3000 MG, PRN6
     Route: 041
     Dates: start: 20161001, end: 20161014
  2. FINIBAX [Suspect]
     Active Substance: DORIPENEM MONOHYDRATE
     Dosage: 250 MG, 1 PER 12 HOUR
     Route: 041
     Dates: start: 20161023, end: 20161104
  3. TYGACIL [Concomitant]
     Active Substance: TIGECYCLINE
     Dosage: 25 MG, 1 PER 12 HOUR
     Route: 065
     Dates: start: 20161019, end: 20161116
  4. MEPEM                              /01250501/ [Concomitant]
     Active Substance: MEROPENEM
     Dosage: 500 MG, 1 PER 12 HOUR
     Route: 042
     Dates: start: 20161021, end: 20161023
  5. SEFTEM [Concomitant]
     Dosage: 100 MG, QD
     Route: 048
     Dates: start: 20161015, end: 20161018
  6. FLAGYL [Concomitant]
     Active Substance: METRONIDAZOLE\METRONIDAZOLE HYDROCHLORIDE
     Dosage: 500 MG, BID
     Route: 048
  7. TATUMCEF [Concomitant]
     Dosage: 1000 MG, QD
     Route: 042
     Dates: start: 20161019, end: 20161021

REACTIONS (2)
  - Pyrexia [Recovering/Resolving]
  - Rash [Recovering/Resolving]
